FAERS Safety Report 19305498 (Version 1)
Quarter: 2021Q2

REPORT INFORMATION
  Report Type: Spontaneous
  Country: GB (occurrence: GB)
  Receive Date: 20210525
  Receipt Date: 20210525
  Transmission Date: 20210717
  Serious: Yes (Other)
  Sender: FDA-Public Use
  Company Number: GB-PFIZER INC-2021540831

PATIENT
  Age: 72 Year
  Sex: Female
  Weight: 84.36 kg

DRUGS (6)
  1. LANSOPRAZOLE. [Concomitant]
     Active Substance: LANSOPRAZOLE
     Dosage: 15 MG
     Dates: start: 1999, end: 2021
  2. BECLOMETASONE [Concomitant]
     Active Substance: BECLOMETHASONE DIPROPIONATE
     Dosage: UNK
     Route: 055
  3. RAMIPRIL. [Concomitant]
     Active Substance: RAMIPRIL
     Dosage: 10 MG
     Dates: start: 1999, end: 2021
  4. DOXYCYCLINE MONOHYDRATE [Suspect]
     Active Substance: DOXYCYCLINE
     Indication: SINUSITIS
     Dosage: 100 MG
     Route: 048
     Dates: start: 20210423, end: 20210427
  5. AMLODIPINE [Concomitant]
     Active Substance: AMLODIPINE BESYLATE
     Dosage: 5 MG
     Dates: start: 1999, end: 2021
  6. LEVOTHYROXINE. [Concomitant]
     Active Substance: LEVOTHYROXINE
     Dosage: 125 UG
     Dates: start: 1999, end: 2021

REACTIONS (3)
  - Oral mucosal discolouration [Recovering/Resolving]
  - Enlarged uvula [Recovering/Resolving]
  - Uvulitis [Recovering/Resolving]

NARRATIVE: CASE EVENT DATE: 20210426
